FAERS Safety Report 25047163 (Version 1)
Quarter: 2025Q1

REPORT INFORMATION
  Report Type: Spontaneous
  Country: US (occurrence: US)
  Receive Date: 20250306
  Receipt Date: 20250306
  Transmission Date: 20250409
  Serious: No
  Sender: MERCK SHARP & DOHME LLC
  Company Number: US-009507513-2255029

PATIENT
  Sex: Female

DRUGS (2)
  1. STROMECTOL [Suspect]
     Active Substance: IVERMECTIN
     Indication: Breast cancer stage III
     Route: 048
     Dates: start: 202406
  2. FENBENDAZOLE [Concomitant]
     Active Substance: FENBENDAZOLE
     Indication: Breast cancer metastatic
     Route: 048
     Dates: start: 202406

REACTIONS (2)
  - Drug effective for unapproved indication [Unknown]
  - No adverse event [Unknown]
